FAERS Safety Report 21879431 (Version 3)
Quarter: 2023Q1

REPORT INFORMATION
  Report Type: Spontaneous
  Country: US (occurrence: None)
  Receive Date: 20230118
  Receipt Date: 20230223
  Transmission Date: 20230418
  Serious: No
  Sender: FDA-Public Use
  Company Number: 2023A009568

PATIENT
  Age: 915 Month
  Sex: Female

DRUGS (6)
  1. BUDESONIDE\FORMOTEROL\GLYCOPYRRONIUM [Suspect]
     Active Substance: BUDESONIDE\FORMOTEROL\GLYCOPYRRONIUM
     Indication: Emphysema
     Dosage: 160/9/4.8 MCG, TWO INHALATIONS, TWICE DAILY
     Route: 055
     Dates: start: 202201, end: 2022
  2. BUDESONIDE\FORMOTEROL\GLYCOPYRRONIUM [Suspect]
     Active Substance: BUDESONIDE\FORMOTEROL\GLYCOPYRRONIUM
     Indication: Chronic obstructive pulmonary disease
     Dosage: 160/9/4.8 MCG, TWO INHALATIONS, TWICE DAILY
     Route: 055
     Dates: start: 202201, end: 2022
  3. BUDESONIDE\FORMOTEROL\GLYCOPYRRONIUM [Suspect]
     Active Substance: BUDESONIDE\FORMOTEROL\GLYCOPYRRONIUM
     Indication: Emphysema
     Dosage: 160/9/4.8 MCG, TWO INHALATIONS, TWICE DAILY
     Route: 055
     Dates: start: 202212
  4. BUDESONIDE\FORMOTEROL\GLYCOPYRRONIUM [Suspect]
     Active Substance: BUDESONIDE\FORMOTEROL\GLYCOPYRRONIUM
     Indication: Chronic obstructive pulmonary disease
     Dosage: 160/9/4.8 MCG, TWO INHALATIONS, TWICE DAILY
     Route: 055
     Dates: start: 202212
  5. SYMBICORT [Suspect]
     Active Substance: BUDESONIDE\FORMOTEROL FUMARATE DIHYDRATE
     Indication: Emphysema
     Dosage: 160/4.5 MCG, TWO INHALATIONS, TWICE DAILY
     Route: 055
     Dates: end: 202201
  6. SYMBICORT [Suspect]
     Active Substance: BUDESONIDE\FORMOTEROL FUMARATE DIHYDRATE
     Indication: Chronic obstructive pulmonary disease
     Dosage: 160/4.5 MCG, TWO INHALATIONS, TWICE DAILY
     Route: 055
     Dates: end: 202201

REACTIONS (10)
  - Dyspnoea [Recovered/Resolved]
  - Pneumonia [Recovered/Resolved]
  - Anxiety [Recovered/Resolved]
  - Nervousness [Recovered/Resolved]
  - Drug ineffective [Unknown]
  - Wrong technique in device usage process [Unknown]
  - Product label confusion [Unknown]
  - Incorrect dose administered by device [Not Recovered/Not Resolved]
  - Off label use [Unknown]
  - Insurance issue [Unknown]

NARRATIVE: CASE EVENT DATE: 20221201
